FAERS Safety Report 5478383-3 (Version None)
Quarter: 2007Q4

REPORT INFORMATION
  Report Type: 
  Country: None (occurrence: None)
  Receive Date: 20071005
  Receipt Date: 20071003
  Transmission Date: 20080405
  Serious: Yes (Hospitalization)
  Sender: FDA-Public Use
  Company Number: B0488618A

PATIENT
  Age: 74 Year
  Sex: Male
  Weight: 87 kg

DRUGS (7)
  1. ARIXTRA [Suspect]
     Indication: THROMBOSIS PROPHYLAXIS
     Route: 058
     Dates: start: 20070201, end: 20070712
  2. MUCOMYST [Concomitant]
     Route: 048
  3. CORDARONE [Concomitant]
     Route: 048
  4. TANAKAN [Concomitant]
  5. TRIVASTAL [Concomitant]
     Route: 048
  6. PNEUMOREL [Concomitant]
  7. PREDNISOLONE [Concomitant]

REACTIONS (7)
  - ACTIVATED PARTIAL THROMBOPLASTIN TIME PROLONGED [None]
  - HAEMATOMA [None]
  - HAEMOGLOBIN DECREASED [None]
  - INDURATION [None]
  - PENIS DISORDER [None]
  - PROTHROMBIN TIME RATIO ABNORMAL [None]
  - TESTICULAR DISORDER [None]
